FAERS Safety Report 9360864 (Version 2)
Quarter: 2013Q3

REPORT INFORMATION
  Report Type: Spontaneous
  Country: US (occurrence: US)
  Receive Date: 20130621
  Receipt Date: 20130710
  Transmission Date: 20140515
  Serious: No
  Sender: FDA-Public Use
  Company Number: US-TEVA-414147USA

PATIENT
  Sex: Female
  Weight: 71.73 kg

DRUGS (7)
  1. NUVIGIL [Suspect]
     Indication: SLEEP APNOEA SYNDROME
     Dosage: 1/2 TAB BID
     Route: 048
     Dates: start: 20130521
  2. HYDROCHLOROTHIAZIDE [Concomitant]
  3. WELLBUTRIN [Concomitant]
  4. GLUCOSAMINE [Concomitant]
  5. PROTONIX [Concomitant]
  6. METFORMIN [Concomitant]
     Indication: DIABETES MELLITUS
  7. FOLIC ACID [Concomitant]
     Indication: SUPPLEMENTATION THERAPY

REACTIONS (1)
  - Dizziness [Recovered/Resolved]
